FAERS Safety Report 10488537 (Version 1)
Quarter: 2014Q4

REPORT INFORMATION
  Report Type: Report from Study
  Country: US (occurrence: US)
  Receive Date: 20141002
  Receipt Date: 20141002
  Transmission Date: 20150528
  Serious: Yes (Hospitalization)
  Sender: FDA-Public Use
  Company Number: US-009507513-1409USA010822

PATIENT
  Age: 69 Year
  Sex: Female

DRUGS (15)
  1. CALCIUM CITRATE (+) CHOLECALCIFEROL [Concomitant]
     Indication: ROUTINE HEALTH MAINTENANCE
     Dosage: 600 MG, QD
     Route: 048
     Dates: start: 20140617
  2. HYPROMELLOSE [Concomitant]
     Active Substance: HYPROMELLOSES
     Dosage: 1 GTT, QPM
     Route: 047
     Dates: start: 20140617
  3. LORAZEPAM. [Concomitant]
     Active Substance: LORAZEPAM
     Indication: ANXIETY
     Dosage: TOTAL DAILY DOSE: 0.5 MG, Q6H, PRN.
     Route: 048
     Dates: start: 20140617
  4. VITAMIN B COMPLEX [Concomitant]
     Active Substance: CYANOCOBALAMIN\DEXPANTHENOL\NIACINAMIDE\PYRIDOXINE HYDROCHLORIDE\RIBOFLAVIN 5^-PHOSPHATE SODIUM\THIAMINE HYDROCHLORIDE\VITAMIN B COMPLEX
     Indication: ROUTINE HEALTH MAINTENANCE
     Dosage: UNK
     Route: 048
     Dates: start: 20140617
  5. PROBIOTICS (UNSPECIFIED) [Concomitant]
     Active Substance: PROBIOTICS NOS
     Indication: ROUTINE HEALTH MAINTENANCE
     Dosage: UNK, QD, PRN
     Route: 048
     Dates: start: 20140715
  6. FAMOTIDINE. [Concomitant]
     Active Substance: FAMOTIDINE
     Indication: GASTROOESOPHAGEAL REFLUX DISEASE
     Dosage: 20 MG, QD
     Route: 048
     Dates: start: 20140617
  7. PNEUMOCOCCAL VACCINE, POLYVALENT (23-VALENT) [Concomitant]
     Indication: IMMUNISATION
     Dosage: 1 DF
     Dates: start: 20140902, end: 20140902
  8. OMEGA-3 MARINE TRIGLYCERIDES [Concomitant]
     Active Substance: FISH OIL
     Indication: ROUTINE HEALTH MAINTENANCE
     Dosage: 600 MG, QD
     Route: 048
     Dates: start: 20140617
  9. PROCHLORPERAZINE. [Concomitant]
     Active Substance: PROCHLORPERAZINE
     Indication: VOMITING
  10. PROCHLORPERAZINE. [Concomitant]
     Active Substance: PROCHLORPERAZINE
     Indication: NAUSEA
     Dosage: TOTAL DAILY DOSE: 10MG, Q6H, PRN.
     Route: 048
     Dates: start: 20140617
  11. BIOTIN [Concomitant]
     Active Substance: BIOTIN
     Indication: ROUTINE HEALTH MAINTENANCE
     Dosage: UNK, QD, TOTAL DAILY DOSE: 2500MG
     Route: 048
     Dates: start: 20140617
  12. ENOXAPARIN SODIUM. [Concomitant]
     Active Substance: ENOXAPARIN SODIUM
     Indication: COAGULOPATHY
     Dosage: 40 MG (1 INJECTION), QD
     Route: 058
     Dates: start: 20140902
  13. PEMBROLIZUMAB. [Suspect]
     Active Substance: PEMBROLIZUMAB
     Indication: METASTATIC MALIGNANT MELANOMA
     Route: 042
  14. CHOLECALCIFEROL [Concomitant]
     Active Substance: CHOLECALCIFEROL
     Indication: ROUTINE HEALTH MAINTENANCE
     Dosage: UNK, QD, TOTAL DAILY DOSE: 5000 IU.
     Route: 048
     Dates: start: 20140617
  15. OXYCODONE HYDROCHLORIDE. [Concomitant]
     Active Substance: OXYCODONE HYDROCHLORIDE
     Indication: PAIN
     Dosage: 5 MG, BID, FORMULATION: OXYCODONE-CR
     Route: 048
     Dates: start: 20140715

REACTIONS (2)
  - Dysphagia [Not Recovered/Not Resolved]
  - Pyrexia [Not Recovered/Not Resolved]

NARRATIVE: CASE EVENT DATE: 20140902
